FAERS Safety Report 4704192-6 (Version None)
Quarter: 2005Q2

REPORT INFORMATION
  Report Type: 
  Country: None (occurrence: None)
  Receive Date: 20050628
  Receipt Date: 20050622
  Transmission Date: 20051028
  Serious: Yes (Hospitalization)
  Sender: FDA-Public Use
  Company Number: USA-2005-0020638

PATIENT
  Sex: Female

DRUGS (1)
  1. OXYCONTIN [Suspect]
     Dosage: 40 MG, Q8H

REACTIONS (2)
  - HEMIPLEGIA [None]
  - PERONEAL NERVE PALSY [None]
